FAERS Safety Report 23094297 (Version 1)
Quarter: 2023Q4

REPORT INFORMATION
  Report Type: Spontaneous
  Country: ES (occurrence: ES)
  Receive Date: 20231023
  Receipt Date: 20231023
  Transmission Date: 20240110
  Serious: Yes (Other)
  Sender: FDA-Public Use
  Company Number: None

PATIENT
  Age: 18 Year
  Sex: Male

DRUGS (2)
  1. IFOSFAMIDE [Interacting]
     Active Substance: IFOSFAMIDE
     Indication: Lymphoma
     Dosage: 25.4 ML, EVERY 1 HOUR (1 VIAL)
     Route: 042
     Dates: start: 20230915, end: 20230915
  2. MESNA [Interacting]
     Active Substance: MESNA
     Indication: Prophylaxis
     Dosage: UNK
     Route: 042
     Dates: start: 20230915, end: 20230915

REACTIONS (3)
  - Chills [Recovered/Resolved]
  - Pyrexia [Recovered/Resolved]
  - Rash [Recovered/Resolved]

NARRATIVE: CASE EVENT DATE: 20230915
